FAERS Safety Report 5148613-6 (Version None)
Quarter: 2006Q4

REPORT INFORMATION
  Report Type: 
  Country: None (occurrence: None)
  Receive Date: 20061107
  Receipt Date: 20061020
  Transmission Date: 20070319
  Serious: Yes (Life-Threatening, Hospitalization)
  Sender: FDA-Public Use
  Company Number: 2006SP004569

PATIENT
  Sex: Female

DRUGS (1)
  1. TEMODAL [Suspect]
     Indication: GLIOBLASTOMA MULTIFORME
     Dosage: PO
     Route: 048

REACTIONS (6)
  - ACCIDENTAL OVERDOSE [None]
  - DEHYDRATION [None]
  - FURUNCLE [None]
  - NAUSEA [None]
  - NEUTROPENIA [None]
  - THROMBOCYTOPENIA [None]
